FAERS Safety Report 9152685 (Version 4)
Quarter: 2013Q3

REPORT INFORMATION
  Report Type: Spontaneous
  Country: DE (occurrence: ES)
  Receive Date: 20130308
  Receipt Date: 20130702
  Transmission Date: 20140515
  Serious: Yes (Hospitalization)
  Sender: FDA-Public Use
  Company Number: ES-FRI-1000043259

PATIENT
  Age: 59 Year
  Sex: Female
  Weight: 62 kg

DRUGS (10)
  1. ROFLUMILAST [Suspect]
     Indication: CHRONIC OBSTRUCTIVE PULMONARY DISEASE
     Dosage: 500 MCG
     Route: 048
     Dates: start: 201206, end: 20130126
  2. ROFLUMILAST [Suspect]
     Dosage: 500 MCG
     Route: 048
     Dates: start: 20130131
  3. SPIRIVA [Concomitant]
     Indication: CHRONIC OBSTRUCTIVE PULMONARY DISEASE
     Route: 055
     Dates: start: 1998
  4. VENTOLINE [Concomitant]
     Indication: CHRONIC OBSTRUCTIVE PULMONARY DISEASE
     Route: 055
     Dates: start: 1998
  5. ALVESCO [Concomitant]
     Indication: CHRONIC OBSTRUCTIVE PULMONARY DISEASE
     Dosage: 1 DF
     Route: 055
     Dates: start: 201206
  6. OMBREZ [Concomitant]
     Indication: CHRONIC OBSTRUCTIVE PULMONARY DISEASE
     Dosage: 1 DF
     Route: 055
     Dates: start: 201206
  7. SEEBRI [Concomitant]
     Dosage: 1 DF
     Route: 055
  8. ARIMIDEX [Concomitant]
     Dosage: 1 DF
     Route: 048
  9. ESCITALOPRAM [Concomitant]
     Dosage: 3 DF
     Route: 048
  10. DICLOFENAC [Concomitant]
     Dosage: 3 DF
     Route: 048

REACTIONS (5)
  - Limb deformity [Not Recovered/Not Resolved]
  - Back disorder [Not Recovered/Not Resolved]
  - Bone pain [Not Recovered/Not Resolved]
  - Flatulence [Recovered/Resolved]
  - Abdominal pain [Recovered/Resolved]
